FAERS Safety Report 11844550 (Version 1)
Quarter: 2015Q4

REPORT INFORMATION
  Report Type: Spontaneous
  Country: US (occurrence: None)
  Receive Date: 20151216
  Receipt Date: 20151216
  Transmission Date: 20160305
  Serious: Yes (Other)
  Sender: FDA-Public Use
  Company Number: None

PATIENT
  Age: 15 Year
  Sex: Male
  Weight: 122.93 kg

DRUGS (5)
  1. ACETAMINOPHEN. [Concomitant]
     Active Substance: ACETAMINOPHEN
  2. LURASIDONE 40 MG [Suspect]
     Active Substance: LURASIDONE
     Dates: start: 20151106, end: 20151115
  3. LURASIDONE 30 MG [Suspect]
     Active Substance: LURASIDONE
     Dates: start: 20151016, end: 20151022
  4. AMLODIPINE [Concomitant]
     Active Substance: AMLODIPINE BESYLATE
  5. LORAZEPAM. [Concomitant]
     Active Substance: LORAZEPAM

REACTIONS (9)
  - Akathisia [None]
  - Dysphagia [None]
  - Dysarthria [None]
  - Myalgia [None]
  - Musculoskeletal stiffness [None]
  - Lethargy [None]
  - Hypertonia [None]
  - Extrapyramidal disorder [None]
  - Hypertension [None]

NARRATIVE: CASE EVENT DATE: 20151115
